FAERS Safety Report 11680028 (Version 1)
Quarter: 2015Q4

REPORT INFORMATION
  Report Type: Report from Study
  Country: US (occurrence: US)
  Receive Date: 20151029
  Receipt Date: 20151029
  Transmission Date: 20160304
  Serious: Yes (Other)
  Sender: FDA-Public Use
  Company Number: US-BRISTOL-MYERS SQUIBB COMPANY-14225569

PATIENT
  Age: 0 Day
  Sex: Male
  Weight: .81 kg

DRUGS (6)
  1. COMBIVIR [Concomitant]
     Active Substance: LAMIVUDINE\ZIDOVUDINE
     Indication: PROPHYLAXIS AGAINST HIV INFECTION
     Dosage: 900 MG, QD
     Route: 064
     Dates: start: 20080225
  2. TRUVADA [Concomitant]
     Active Substance: EMTRICITABINE\TENOFOVIR DISOPROXIL FUMARATE
     Indication: PROPHYLAXIS AGAINST HIV INFECTION
     Dosage: 1 DF, UNK
     Route: 064
     Dates: start: 20050801, end: 20080224
  3. ATAZANAVIR SULFATE [Suspect]
     Active Substance: ATAZANAVIR SULFATE
     Indication: PROPHYLAXIS AGAINST HIV INFECTION
     Dosage: 300 MG, QD
     Route: 064
     Dates: start: 20050801
  4. RITONAVIR. [Concomitant]
     Active Substance: RITONAVIR
     Indication: PROPHYLAXIS AGAINST HIV INFECTION
     Dosage: 100 MG, QD
     Route: 064
     Dates: start: 20050801
  5. COCAINE [Concomitant]
     Active Substance: COCAINE
     Indication: PRODUCT USED FOR UNKNOWN INDICATION
     Dosage: UNK
     Route: 064
     Dates: start: 2008
  6. HEROIN [Concomitant]
     Active Substance: DIACETYLMORPHINE
     Dosage: UNK
     Route: 064
     Dates: start: 2008

REACTIONS (4)
  - Respiratory distress [Unknown]
  - Premature baby [Unknown]
  - Cerebral haemorrhage [Unknown]
  - Foetal exposure during pregnancy [Unknown]

NARRATIVE: CASE EVENT DATE: 20080520
